FAERS Safety Report 9785885 (Version 1)
Quarter: 2013Q4

REPORT INFORMATION
  Report Type: Spontaneous
  Country: BR (occurrence: None)
  Receive Date: 20131223
  Receipt Date: 20131223
  Transmission Date: 20140711
  Serious: Yes (Hospitalization)
  Sender: FDA-Public Use
  Company Number: 2013-003998

PATIENT
  Age: 57 Year
  Sex: Female
  Weight: 51 kg

DRUGS (2)
  1. ACTONEL [Suspect]
     Indication: OSTEOPOROSIS
     Dosage: 150 MG ONCE MONTHLY, ORAL
     Route: 048
     Dates: start: 20131108, end: 201312
  2. OSCAL D/00944201/CALCIUM CARBONATE, COLECALCIFEROL) [Concomitant]

REACTIONS (11)
  - Constipation [None]
  - Muscular weakness [None]
  - Myalgia [None]
  - Rash macular [None]
  - Skin lesion [None]
  - Vomiting [None]
  - Blood potassium decreased [None]
  - Decreased appetite [None]
  - Body temperature increased [None]
  - Nausea [None]
  - Blood pressure decreased [None]
